FAERS Safety Report 5707246-0 (Version None)
Quarter: 2008Q2

REPORT INFORMATION
  Report Type: 
  Country: None (occurrence: None)
  Receive Date: 20080411
  Receipt Date: 20080411
  Transmission Date: 20081010
  Serious: Yes (Other)
  Sender: FDA-Public Use
  Company Number: None

PATIENT
  Age: 62 Year
  Sex: Male
  Weight: 84.8226 kg

DRUGS (2)
  1. NIASPAN [Suspect]
     Indication: HIGH DENSITY LIPOPROTEIN INCREASED
     Dosage: 500MG 1 TIME EACH NIGHT PO
     Route: 048
     Dates: start: 20080408, end: 20080409
  2. NIASPAN [Suspect]
     Indication: LOW DENSITY LIPOPROTEIN INCREASED
     Dosage: 500MG 1 TIME EACH NIGHT PO
     Route: 048
     Dates: start: 20080408, end: 20080409

REACTIONS (13)
  - BURNING SENSATION [None]
  - CHILLS [None]
  - DIARRHOEA [None]
  - DIZZINESS [None]
  - EPISTAXIS [None]
  - ERYTHEMA [None]
  - FALL [None]
  - HAEMORRHAGE [None]
  - HEAD INJURY [None]
  - HEADACHE [None]
  - NAUSEA [None]
  - SYNCOPE [None]
  - VOMITING [None]
